FAERS Safety Report 5031177-5 (Version None)
Quarter: 2006Q2

REPORT INFORMATION
  Report Type: 
  Country: None (occurrence: None)
  Receive Date: 20060619
  Receipt Date: 20060619
  Transmission Date: 20061013
  Serious: No
  Sender: FDA-Public Use
  Company Number: None

PATIENT
  Age: 70 Year
  Sex: Female
  Weight: 68.0396 kg

DRUGS (4)
  1. LEVAQUIN [Suspect]
     Indication: HEADACHE
     Dosage: SEE IMAGE
     Route: 042
     Dates: start: 20040511, end: 20040514
  2. LEVAQUIN [Suspect]
     Indication: INTESTINAL OBSTRUCTION
     Dosage: SEE IMAGE
     Route: 042
     Dates: start: 20040511, end: 20040514
  3. LEVAQUIN [Suspect]
     Indication: HEADACHE
     Dosage: SEE IMAGE
     Route: 042
     Dates: start: 20060226, end: 20060306
  4. LEVAQUIN [Suspect]
     Indication: INTESTINAL OBSTRUCTION
     Dosage: SEE IMAGE
     Route: 042
     Dates: start: 20060226, end: 20060306

REACTIONS (11)
  - ABDOMINAL PAIN UPPER [None]
  - ARTHRALGIA [None]
  - DRUG TOXICITY [None]
  - ERYTHEMA [None]
  - HEADACHE [None]
  - IMPAIRED WORK ABILITY [None]
  - INJECTION SITE ERYTHEMA [None]
  - INJECTION SITE REACTION [None]
  - ROTATOR CUFF SYNDROME [None]
  - ULCER [None]
  - VEIN DISORDER [None]
